FAERS Safety Report 16534320 (Version 1)
Quarter: 2019Q3

REPORT INFORMATION
  Report Type: Spontaneous
  Country: US (occurrence: US)
  Receive Date: 20190704
  Receipt Date: 20190704
  Transmission Date: 20191004
  Serious: Yes (Disabling, Other)
  Sender: FDA-Public Use
  Company Number: None

PATIENT
  Age: 31 Year
  Sex: Male
  Weight: 67.5 kg

DRUGS (1)
  1. MELOXICAM. [Suspect]
     Active Substance: MELOXICAM
     Indication: ARTHRALGIA
     Dosage: ?          QUANTITY:1 TABLET(S);?
     Route: 048
     Dates: start: 20190603, end: 20190626

REACTIONS (7)
  - Abdominal pain upper [None]
  - Nausea [None]
  - Fatigue [None]
  - Internal haemorrhage [None]
  - Loss of consciousness [None]
  - Nuchal rigidity [None]
  - Dizziness [None]

NARRATIVE: CASE EVENT DATE: 20190625
